FAERS Safety Report 4883198-0 (Version None)
Quarter: 2006Q1

REPORT INFORMATION
  Report Type: 
  Country: None (occurrence: None)
  Receive Date: 20060118
  Receipt Date: 20060105
  Transmission Date: 20060701
  Serious: Yes (Hospitalization)
  Sender: FDA-Public Use
  Company Number: CH-JNJFOC-20051003184

PATIENT
  Sex: Female

DRUGS (13)
  1. RISPERDAL [Suspect]
     Route: 048
  2. RISPERDAL [Suspect]
     Indication: DRUG USE FOR UNKNOWN INDICATION
     Route: 048
  3. DIPIPERON [Interacting]
     Indication: DRUG USE FOR UNKNOWN INDICATION
     Route: 065
  4. TEMESTA [Interacting]
     Route: 048
  5. TEMESTA [Interacting]
     Route: 048
  6. TEMESTA [Interacting]
     Route: 048
  7. TEMESTA [Interacting]
     Route: 048
  8. TEMESTA [Interacting]
     Indication: DRUG USE FOR UNKNOWN INDICATION
     Route: 048
  9. SPASMO-URGENIN [Concomitant]
  10. SPASMO-URGENIN [Concomitant]
  11. SPASMO-URGENIN [Concomitant]
  12. ASPIRIN [Concomitant]
     Route: 048
  13. DIPIPERON [Concomitant]
     Route: 048

REACTIONS (8)
  - CONTUSION [None]
  - DIZZINESS [None]
  - DROP ATTACKS [None]
  - DRUG INTERACTION [None]
  - FALL [None]
  - HAEMATOMA [None]
  - HYPOTENSION [None]
  - SOMNOLENCE [None]
